FAERS Safety Report 9920761 (Version 2)
Quarter: 2014Q1

REPORT INFORMATION
  Report Type: Spontaneous
  Country: US (occurrence: US)
  Receive Date: 20140224
  Receipt Date: 20140224
  Transmission Date: 20141002
  Serious: Yes (Disabling)
  Sender: FDA-Public Use
  Company Number: US-GE HEALTHCARE MEDICAL DIAGNOSTICS-OSCN-PR-0904S-0188

PATIENT
  Age: 74 Year
  Sex: Male

DRUGS (3)
  1. OMNISCAN [Suspect]
     Indication: PRODUCT USED FOR UNKNOWN INDICATION
     Route: 042
     Dates: start: 20040329, end: 20040329
  2. OMNISCAN [Suspect]
     Route: 042
     Dates: start: 20060417, end: 20060417
  3. OMNISCAN [Suspect]
     Route: 042
     Dates: start: 20060728, end: 20060728

REACTIONS (1)
  - Nephrogenic systemic fibrosis [Not Recovered/Not Resolved]
